FAERS Safety Report 7853145-8 (Version None)
Quarter: 2011Q4

REPORT INFORMATION
  Report Type: 
  Country: None (occurrence: None)
  Receive Date: 20111026
  Receipt Date: 20111024
  Transmission Date: 20120403
  Serious: Yes (Hospitalization, Disabling, Other)
  Sender: FDA-Public Use
  Company Number: US-MERCK-1108USA03296

PATIENT
  Age: 68 Year
  Sex: Male
  Weight: 108 kg

DRUGS (1)
  1. JANUVIA [Suspect]
     Indication: TYPE 2 DIABETES MELLITUS
     Route: 048
     Dates: start: 20100101, end: 20110101

REACTIONS (6)
  - DIABETES MELLITUS INADEQUATE CONTROL [None]
  - ILEUS [None]
  - DYSPEPSIA [None]
  - CHEST PAIN [None]
  - CORONARY ARTERY DISEASE [None]
  - PANCREATITIS ACUTE [None]
